FAERS Safety Report 4825861-3 (Version None)
Quarter: 2005Q4

REPORT INFORMATION
  Report Type: 
  Country: None (occurrence: None)
  Receive Date: 20051111
  Receipt Date: 20050919
  Transmission Date: 20060501
  Serious: Yes (Hospitalization)
  Sender: FDA-Public Use
  Company Number: US-AMGEN-KDL151000

PATIENT
  Sex: Female

DRUGS (21)
  1. ENBREL [Suspect]
     Indication: RHEUMATOID ARTHRITIS
     Route: 058
     Dates: start: 20000901, end: 20050223
  2. METHOTREXATE [Concomitant]
     Dates: start: 19840101
  3. MEDROL [Concomitant]
  4. PHENERGAN EXPECTORANT W/ CODEINE [Concomitant]
  5. AEROBID [Concomitant]
  6. BRETHINE [Concomitant]
  7. POTASSIUM CHLORIDE [Concomitant]
  8. PREVACID [Concomitant]
  9. FOLIC ACID [Concomitant]
  10. ALLEGRA [Concomitant]
  11. ADVAIR DISKUS 100/50 [Concomitant]
  12. LASIX [Concomitant]
  13. LORAZEPAM [Concomitant]
  14. SINGULAIR [Concomitant]
  15. ALBUTEROL [Concomitant]
     Route: 055
  16. PERCOCET [Concomitant]
  17. SULINDAC [Concomitant]
  18. PREMARIN [Concomitant]
  19. FLONASE [Concomitant]
  20. LEUCOVORIN [Concomitant]
  21. RESPIRATORY MEDICATION NOS [Concomitant]
     Route: 055

REACTIONS (4)
  - CATARACT [None]
  - FALL [None]
  - POSTOPERATIVE WOUND INFECTION [None]
  - TENDON INJURY [None]
